FAERS Safety Report 8576269-9 (Version None)
Quarter: 2012Q3

REPORT INFORMATION
  Report Type: 
  Country: None (occurrence: None)
  Receive Date: 20120807
  Receipt Date: 20120726
  Transmission Date: 20120928
  Serious: Yes (Hospitalization)
  Sender: FDA-Public Use
  Company Number: PT-ELI_LILLY_AND_COMPANY-PT201207008274

PATIENT
  Sex: Male
  Weight: 66 kg

DRUGS (7)
  1. FOLIC ACID [Concomitant]
     Indication: PROPHYLAXIS
     Dosage: UNK
     Dates: start: 20120321
  2. PEMETREXED [Suspect]
     Dosage: 500 MG/M2, EVERY 21 DAYS
     Route: 042
     Dates: start: 20120625
  3. VITAMIN B-12 [Concomitant]
     Indication: PROPHYLAXIS
     Dosage: UNK
     Dates: start: 20120321
  4. PEMETREXED [Suspect]
     Indication: NON-SMALL CELL LUNG CANCER STAGE III
     Dosage: 500 MG/M2, EVERY 21 DAYS
     Route: 042
     Dates: start: 20120402, end: 20120514
  5. RADIATION [Suspect]
     Indication: NON-SMALL CELL LUNG CANCER STAGE III
     Dosage: 66 GRAY, UNKNOWN
     Route: 065
     Dates: start: 20120402, end: 20120521
  6. DEXAMETHASONE [Concomitant]
     Indication: PROPHYLAXIS
     Dosage: UNK UNK, UNKNOWN
     Route: 065
     Dates: start: 20120715, end: 20120717
  7. CISPLATIN [Suspect]
     Indication: NON-SMALL CELL LUNG CANCER STAGE III
     Dosage: 75 MG/M2, EVERY 21 DAYS
     Route: 042
     Dates: start: 20120402, end: 20120514

REACTIONS (2)
  - PYREXIA [None]
  - HYPOXIA [None]
